FAERS Safety Report 11132951 (Version 3)
Quarter: 2015Q2

REPORT INFORMATION
  Report Type: Report from Study
  Country: CA (occurrence: CA)
  Receive Date: 20150522
  Receipt Date: 20150601
  Transmission Date: 20150821
  Serious: Yes (Hospitalization, Other)
  Sender: FDA-Public Use
  Company Number: CA-ABBVIE-15K-028-1393166-00

PATIENT
  Sex: Female
  Weight: 99.88 kg

DRUGS (1)
  1. HUMIRA [Suspect]
     Active Substance: ADALIMUMAB
     Indication: CROHN^S DISEASE
     Route: 058
     Dates: start: 20131119

REACTIONS (3)
  - Crohn^s disease [Recovering/Resolving]
  - Blood potassium decreased [Recovering/Resolving]
  - Abdominal adhesions [Recovering/Resolving]

NARRATIVE: CASE EVENT DATE: 2015
